FAERS Safety Report 4284559-3 (Version None)
Quarter: 2004Q1

REPORT INFORMATION
  Report Type: 
  Country: None (occurrence: None)
  Receive Date: 20040130
  Receipt Date: 20040114
  Transmission Date: 20041129
  Serious: Yes (Life-Threatening, Hospitalization)
  Sender: FDA-Public Use
  Company Number: HQWYE081313AUG03

PATIENT
  Age: 74 Year
  Sex: Female

DRUGS (9)
  1. BISOPROLOL FUMARATE [Suspect]
     Indication: ESSENTIAL HYPERTENSION
     Dosage: 10 MG 1X PER 1 DAY; ORAL (SEE IMAGE)
     Route: 048
     Dates: start: 20030401, end: 20030419
  2. BISOPROLOL FUMARATE [Suspect]
     Indication: ESSENTIAL HYPERTENSION
     Dosage: 10 MG 1X PER 1 DAY; ORAL (SEE IMAGE)
     Route: 048
     Dates: start: 20030420
  3. ALDACTONE [Concomitant]
  4. ACETYLSALICYLIC ACID [Concomitant]
  5. BERLININSULIN H BASAL (INSULIN HUMAN) [Concomitant]
  6. INSULIN HUMAN [Concomitant]
  7. ENALAPRIL [Concomitant]
  8. FUROSEMIDE [Concomitant]
  9. NORVASC [Concomitant]

REACTIONS (16)
  - ASPARTATE AMINOTRANSFERASE INCREASED [None]
  - ATRIOVENTRICULAR BLOCK FIRST DEGREE [None]
  - BLOOD GLUCOSE INCREASED [None]
  - BLOOD POTASSIUM INCREASED [None]
  - BLOOD PRESSURE SYSTOLIC INCREASED [None]
  - BRADYCARDIA [None]
  - CYANOSIS [None]
  - FATIGUE [None]
  - HAEMOGLOBIN DECREASED [None]
  - HEART RATE DECREASED [None]
  - HYPOTONIA [None]
  - INTERNATIONAL NORMALISED RATIO DECREASED [None]
  - LOSS OF CONSCIOUSNESS [None]
  - MUSCLE CRAMP [None]
  - REFUSAL OF TREATMENT BY PATIENT [None]
  - TROPONIN INCREASED [None]
